FAERS Safety Report 18590032 (Version 1)
Quarter: 2020Q4

REPORT INFORMATION
  Report Type: Spontaneous
  Country: US (occurrence: US)
  Receive Date: 20201207
  Receipt Date: 20201207
  Transmission Date: 20210114
  Serious: No
  Sender: FDA-Public Use
  Company Number: None

PATIENT
  Age: 49 Year
  Sex: Female

DRUGS (1)
  1. ENBREL [Suspect]
     Active Substance: ETANERCEPT
     Indication: RHEUMATOID ARTHRITIS
     Route: 058
     Dates: start: 201908

REACTIONS (7)
  - Suicidal ideation [None]
  - Restless legs syndrome [None]
  - Irritability [None]
  - Anxiety [None]
  - Dyskinesia [None]
  - Feeling abnormal [None]
  - Adverse drug reaction [None]
